FAERS Safety Report 15824036 (Version 1)
Quarter: 2019Q1

REPORT INFORMATION
  Report Type: Report from Study
  Country: US (occurrence: ZA)
  Receive Date: 20190114
  Receipt Date: 20190114
  Transmission Date: 20190417
  Serious: Yes (Other)
  Sender: FDA-Public Use
  Company Number: ZA-STI PHARMA LLC-2061180

PATIENT
  Age: 31 Year
  Sex: Male

DRUGS (11)
  1. TERIZIDONE [Suspect]
     Active Substance: TERIZIDONE
     Route: 048
     Dates: start: 20180516, end: 20181012
  2. DELAMINID [Suspect]
     Active Substance: DELAMANID
     Route: 048
     Dates: start: 20181026
  3. LINEZOLID. [Suspect]
     Active Substance: LINEZOLID
     Route: 048
     Dates: start: 20180719, end: 20181012
  4. IMIPENEM [Suspect]
     Active Substance: IMIPENEM
     Route: 040
     Dates: start: 20181025
  5. BEDAQUILINE [Suspect]
     Active Substance: BEDAQUILINE
     Route: 048
     Dates: start: 20180719
  6. PYRAZINAMIDE. [Suspect]
     Active Substance: PYRAZINAMIDE
     Route: 048
     Dates: start: 20180516
  7. ETHAMBUTOL HYDROCHLORIDE. [Suspect]
     Active Substance: ETHAMBUTOL HYDROCHLORIDE
     Route: 048
     Dates: start: 20180516, end: 20181012
  8. CLOFAZIMINE [Suspect]
     Active Substance: CLOFAZIMINE
     Route: 048
     Dates: start: 20180516
  9. ETHIONAMIDE [Suspect]
     Active Substance: ETHIONAMIDE
     Route: 048
     Dates: start: 20180516, end: 20181012
  10. AMOXICILLIN AND CLAVULANATE POTASSIUM [Suspect]
     Active Substance: AMOXICILLIN\CLAVULANATE POTASSIUM
     Route: 048
     Dates: start: 20181025
  11. LEVOFLOXACIN. [Suspect]
     Active Substance: LEVOFLOXACIN
     Route: 048
     Dates: start: 20180516

REACTIONS (3)
  - Optic neuritis [Unknown]
  - Toxic optic neuropathy [Unknown]
  - Vision blurred [Not Recovered/Not Resolved]

NARRATIVE: CASE EVENT DATE: 20181012
